FAERS Safety Report 9679570 (Version 1)
Quarter: 2013Q4

REPORT INFORMATION
  Report Type: Spontaneous
  Country: US (occurrence: US)
  Receive Date: 20131109
  Receipt Date: 20131109
  Transmission Date: 20140711
  Serious: No
  Sender: FDA-Public Use
  Company Number: US-SA-2013SA096251

PATIENT
  Age: 44 Year
  Sex: Female
  Weight: 49.44 kg

DRUGS (3)
  1. ALLEGRA D [Suspect]
     Indication: HYPERSENSITIVITY
     Route: 048
     Dates: start: 201307
  2. ALLEGRA D [Suspect]
     Indication: HYPERSENSITIVITY
     Route: 048
     Dates: start: 20130702, end: 20130703
  3. ALLEGRA D [Suspect]
     Indication: URTICARIA
     Route: 048
     Dates: start: 20130702, end: 20130703

REACTIONS (4)
  - Feeling abnormal [Recovered/Resolved]
  - Tremor [Recovered/Resolved]
  - Insomnia [Recovered/Resolved]
  - Palpitations [Unknown]
